FAERS Safety Report 25776141 (Version 1)
Quarter: 2025Q3

REPORT INFORMATION
  Report Type: Spontaneous
  Country: US (occurrence: US)
  Receive Date: 20250909
  Receipt Date: 20250909
  Transmission Date: 20251020
  Serious: No
  Sender: DOMPE FARMACEUTICI
  Company Number: US-FARMAPROD-202408-2900

PATIENT
  Sex: Female

DRUGS (36)
  1. OXERVATE [Suspect]
     Active Substance: CENEGERMIN-BKBJ
     Indication: Neurotrophic keratopathy
     Route: 047
     Dates: start: 20240719
  2. OXERVATE [Suspect]
     Active Substance: CENEGERMIN-BKBJ
  3. ADENOSINE-5-TRIPHOSPHATE [Concomitant]
  4. VITAMIN C [Concomitant]
     Active Substance: ASCORBIC ACID
  5. ASPIRIN [Concomitant]
     Active Substance: ASPIRIN
  6. CARBIDOPA AND LEVODOPA [Concomitant]
     Active Substance: CARBIDOPA\LEVODOPA
  7. CELEBREX [Concomitant]
     Active Substance: CELECOXIB
  8. CICLOPIROX [Concomitant]
     Active Substance: CICLOPIROX
  9. VITAMIN D3 [Concomitant]
     Active Substance: CHOLECALCIFEROL
  10. CLOTRIMAZOLE-3 [Concomitant]
  11. CRANBERRY [Concomitant]
     Active Substance: CRANBERRY
  12. ECHINACEA [Concomitant]
     Active Substance: ECHINACEA, UNSPECIFIED
  13. EPINEPHRINE [Concomitant]
     Active Substance: EPINEPHRINE
  14. FAMOTIDINE [Concomitant]
     Active Substance: FAMOTIDINE
  15. FAMOTIDINE [Concomitant]
     Active Substance: FAMOTIDINE
  16. HAWTHORNE BERRY [Concomitant]
  17. LORAZEPAM [Concomitant]
     Active Substance: LORAZEPAM
  18. ACIDOPHILUS-PECTIN [Concomitant]
  19. ATROVENT [Concomitant]
     Active Substance: IPRATROPIUM BROMIDE
  20. GARLIC OIL [Concomitant]
     Active Substance: GARLIC OIL
  21. QVAR REDIHALER [Concomitant]
     Active Substance: BECLOMETHASONE DIPROPIONATE
  22. VITAMIN E [Concomitant]
     Active Substance: .ALPHA.-TOCOPHEROL
  23. VALSARTAN [Concomitant]
     Active Substance: VALSARTAN
  24. TIZANIDINE HYDROCHLORIDE [Concomitant]
     Active Substance: TIZANIDINE HYDROCHLORIDE
  25. PYRIDOSTIGMINE BROMIDE [Concomitant]
     Active Substance: PYRIDOSTIGMINE BROMIDE
  26. MOTEGRITY [Concomitant]
     Active Substance: PRUCALOPRIDE SUCCINATE
  27. PREGNENOLONE [Concomitant]
     Active Substance: PREGNENOLONE
  28. NALTREXONE HYDROCHLORIDE [Concomitant]
     Active Substance: NALTREXONE HYDROCHLORIDE
  29. METRONIDAZOLE [Concomitant]
     Active Substance: METRONIDAZOLE
  30. LACTULOSE [Concomitant]
     Active Substance: LACTULOSE
  31. LEVOTHYROXINE SODIUM [Concomitant]
     Active Substance: LEVOTHYROXINE SODIUM
  32. LEVOTHYROXINE SODIUM [Concomitant]
     Active Substance: LEVOTHYROXINE SODIUM
  33. LEVOTHYROXINE SODIUM [Concomitant]
     Active Substance: LEVOTHYROXINE SODIUM
  34. CHILDRENS BENADRYL ALLERGY [Concomitant]
     Active Substance: DIPHENHYDRAMINE HYDROCHLORIDE
  35. SYSTANE COMPLETE [Concomitant]
     Active Substance: PROPYLENE GLYCOL
  36. CEQUA [Concomitant]
     Active Substance: CYCLOSPORINE

REACTIONS (3)
  - COVID-19 [Unknown]
  - Eyelid disorder [Not Recovered/Not Resolved]
  - Eye pain [Unknown]
